FAERS Safety Report 5105941-8 (Version None)
Quarter: 2006Q3

REPORT INFORMATION
  Report Type: 
  Country: None (occurrence: None)
  Receive Date: 20060912
  Receipt Date: 20060828
  Transmission Date: 20061208
  Serious: Yes (Hospitalization, Other)
  Sender: FDA-Public Use
  Company Number: 2006S1007017

PATIENT
  Age: 57 Year
  Sex: Female
  Weight: 86.637 kg

DRUGS (3)
  1. PROBENECID [Suspect]
     Indication: GOUT
     Dosage: 500 MG; BID; PO
     Route: 048
     Dates: start: 20060703, end: 20060725
  2. RAMIPRIL [Concomitant]
  3. INDOMETHACIN [Concomitant]

REACTIONS (7)
  - ANAEMIA [None]
  - HYPOXIA [None]
  - MYALGIA [None]
  - PNEUMONITIS [None]
  - RENAL FAILURE [None]
  - RENAL FAILURE ACUTE [None]
  - ROCKY MOUNTAIN SPOTTED FEVER [None]
